FAERS Safety Report 9891505 (Version 3)
Quarter: 2014Q1

REPORT INFORMATION
  Report Type: Report from Study
  Country: KR (occurrence: KR)
  Receive Date: 20140212
  Receipt Date: 20140226
  Transmission Date: 20141002
  Serious: Yes (Hospitalization)
  Sender: FDA-Public Use
  Company Number: KR-009507513-1402KOR004014

PATIENT
  Age: 57 Year
  Sex: Male

DRUGS (8)
  1. BOCEPREVIR [Suspect]
     Indication: CHRONIC HEPATITIS C
     Dosage: TOTAL DAILY DOSE:2400 MG, FREQUENCY:12C/TID
     Route: 048
     Dates: start: 20131120, end: 20140122
  2. PEGINTRON REDIPEN [Suspect]
     Indication: CHRONIC HEPATITIS C
     Dosage: 100 MICROGRAM, QW
     Route: 042
     Dates: start: 20131023, end: 20140122
  3. VIRAMID [Suspect]
     Indication: CHRONIC HEPATITIS C
     Dosage: DAILY DOSE: 1000 MG,FREQUENCY:5C/BID
     Route: 048
     Dates: start: 20131023, end: 20140122
  4. VIRAMID [Suspect]
     Dosage: DAILY DOSE: 1000 MG,FREQUENCY:5C/BID
     Route: 048
     Dates: start: 20140207, end: 20140208
  5. GASMOTIN [Concomitant]
     Indication: DYSPEPSIA
     Dosage: TOTAL DAILY DOSE: 15 MG,THREE TIMES ADAY(3T/TID)
     Route: 048
     Dates: start: 20131120
  6. GALVUS [Concomitant]
     Indication: DIABETES MELLITUS
     Dosage: TOTAL DAILY DOSE:50 MG,(1T/QD)
     Route: 048
     Dates: start: 20130610
  7. GODEX CAP [Concomitant]
     Indication: LIVER DISORDER
     Dosage: TOTAL DAILY DOSE:6 CAPSULES (FREQUENCY:6C/TID)
     Route: 048
     Dates: start: 20131120
  8. URSA SOFT CAPS [Concomitant]
     Indication: LIVER DISORDER
     Dosage: TOTAL DAILY DOSE: 600 MG(FREQUENCY 3C/TID)
     Route: 048
     Dates: start: 20131120

REACTIONS (5)
  - Productive cough [Recovered/Resolved]
  - Dizziness [Recovered/Resolved]
  - Cough [Recovered/Resolved]
  - Rhinorrhoea [Recovered/Resolved]
  - Chills [Recovered/Resolved]
